FAERS Safety Report 11544491 (Version 1)
Quarter: 2015Q3

REPORT INFORMATION
  Report Type: Spontaneous
  Country: US (occurrence: US)
  Receive Date: 20150924
  Receipt Date: 20150924
  Transmission Date: 20151125
  Serious: Yes (Other)
  Sender: FDA-Public Use
  Company Number: US-SUN PHARMACEUTICAL INDUSTRIES LTD-13SUNAN04P

PATIENT
  Age: 56 Year
  Sex: Female

DRUGS (2)
  1. ANASTRAZOLE TABLETS 1MG [Suspect]
     Active Substance: ANASTROZOLE
     Indication: ADJUVANT THERAPY
     Dosage: UNK
     Route: 065
     Dates: start: 20110820, end: 201111
  2. LETROZOLE TABS 2.5MG [Suspect]
     Active Substance: LETROZOLE
     Indication: ADJUVANT THERAPY
     Dosage: UNK
     Route: 065
     Dates: start: 201111, end: 201111

REACTIONS (3)
  - Depression [Recovering/Resolving]
  - Mood altered [Recovering/Resolving]
  - Suicidal ideation [Recovered/Resolved]
